FAERS Safety Report 23308658 (Version 3)
Quarter: 2023Q4

REPORT INFORMATION
  Report Type: Spontaneous
  Country: US (occurrence: US)
  Receive Date: 20231218
  Receipt Date: 20231219
  Transmission Date: 20240109
  Serious: No
  Sender: FDA-Public Use
  Company Number: US-OPELLA-2023OHG015893

PATIENT
  Sex: Male

DRUGS (2)
  1. CORTIZONE 10 [Suspect]
     Active Substance: HYDROCORTISONE
     Indication: Acarodermatitis
     Route: 065
  2. VASELINE PURE [Concomitant]
     Active Substance: PETROLATUM
     Indication: Acarodermatitis
     Route: 065

REACTIONS (2)
  - Therapeutic product effect incomplete [Unknown]
  - No adverse event [Unknown]
